FAERS Safety Report 8116783-3 (Version None)
Quarter: 2012Q1

REPORT INFORMATION
  Report Type: 
  Country: None (occurrence: None)
  Receive Date: 20120206
  Receipt Date: 20120130
  Transmission Date: 20120608
  Serious: Yes (Hospitalization, Other)
  Sender: FDA-Public Use
  Company Number: PHEH2012US001351

PATIENT
  Sex: Male
  Weight: 82.9 kg

DRUGS (7)
  1. LOSARTAN POTASSIUM [Suspect]
  2. GILENYA [Suspect]
     Dosage: 0.5 MG, QD
     Route: 048
     Dates: start: 20100101
  3. LISINOPRIL [Concomitant]
  4. BLOOD PRESSURE MEDICATIONS [Concomitant]
  5. HYDROCODONE BITARTRATE [Concomitant]
     Indication: PAIN
  6. AMPYRA [Concomitant]
  7. GILENYA [Suspect]
     Dosage: UNK
     Route: 048
     Dates: start: 20080101

REACTIONS (7)
  - INFLUENZA LIKE ILLNESS [None]
  - SYNCOPE [None]
  - DYSPEPSIA [None]
  - FATIGUE [None]
  - PAIN [None]
  - COUGH [None]
  - PNEUMONIA [None]
